FAERS Safety Report 7743880-4 (Version None)
Quarter: 2011Q3

REPORT INFORMATION
  Report Type: 
  Country: None (occurrence: None)
  Receive Date: 20110912
  Receipt Date: 20110901
  Transmission Date: 20111222
  Serious: Yes (Other)
  Sender: FDA-Public Use
  Company Number: US-GLAXOSMITHKLINE-A0943187A

PATIENT
  Age: 45 Year
  Sex: Female

DRUGS (7)
  1. SUMATRIPTAN SUCCINATE [Concomitant]
  2. CETIRIZINE HCL [Concomitant]
  3. VENTOLIN HFA [Concomitant]
  4. ADVAIR DISKUS 100/50 [Suspect]
     Indication: ASTHMA
     Dosage: 1PUFF TWICE PER DAY
     Route: 055
     Dates: start: 20110601
  5. RISPERIDONE [Concomitant]
  6. BUPROPION HCL [Concomitant]
  7. TRAZODONE HCL [Concomitant]

REACTIONS (3)
  - DRUG ADMINISTRATION ERROR [None]
  - DYSGEUSIA [None]
  - ASTHMA [None]
